FAERS Safety Report 7157374-0 (Version None)
Quarter: 2010Q4

REPORT INFORMATION
  Report Type: 
  Country: None (occurrence: None)
  Receive Date: 20101214
  Receipt Date: 20101203
  Transmission Date: 20110411
  Serious: No
  Sender: FDA-Public Use
  Company Number: US-PFIZER INC-2010165723

PATIENT
  Age: 62 Year
  Sex: Male

DRUGS (1)
  1. RELISTOR [Suspect]
     Dosage: UNK
     Route: 058

REACTIONS (2)
  - FEELING ABNORMAL [None]
  - INCORRECT ROUTE OF DRUG ADMINISTRATION [None]
